FAERS Safety Report 5878263-5 (Version None)
Quarter: 2008Q3

REPORT INFORMATION
  Report Type: 
  Country: None (occurrence: None)
  Receive Date: 20080911
  Receipt Date: 20080903
  Transmission Date: 20090109
  Serious: Yes (Hospitalization, Other)
  Sender: FDA-Public Use
  Company Number: JP-PFIZER INC-2008057421

PATIENT
  Sex: Female
  Weight: 49 kg

DRUGS (9)
  1. DOSTINEX [Suspect]
     Indication: HYPERPROLACTINAEMIA
     Route: 048
     Dates: start: 20080630, end: 20080703
  2. MOBIC [Concomitant]
     Indication: ABDOMINAL PAIN LOWER
     Route: 048
     Dates: start: 20080404
  3. LANDSEN [Concomitant]
     Indication: ABDOMINAL PAIN LOWER
     Route: 048
     Dates: start: 20070205
  4. MAGNESIUM OXIDE [Concomitant]
     Indication: CONSTIPATION
     Route: 048
     Dates: start: 20070215
  5. GASMOTIN [Concomitant]
     Indication: CONSTIPATION
     Route: 048
     Dates: start: 20070511
  6. LANSOPRAZOLE [Concomitant]
     Indication: REFLUX OESOPHAGITIS
     Route: 048
     Dates: start: 20070215
  7. NEUROTROPIN [Concomitant]
     Indication: ABDOMINAL PAIN LOWER
     Route: 048
     Dates: start: 20080530
  8. CODEINE PHOSPHATE [Concomitant]
     Indication: ABDOMINAL PAIN LOWER
     Route: 048
     Dates: start: 20060507
  9. DIENOGEST [Concomitant]
     Route: 048
     Dates: start: 20080617

REACTIONS (5)
  - DELIRIUM [None]
  - DEPRESSED LEVEL OF CONSCIOUSNESS [None]
  - NAUSEA [None]
  - OVERDOSE [None]
  - VOMITING [None]
